FAERS Safety Report 5348412-6 (Version None)
Quarter: 2007Q2

REPORT INFORMATION
  Report Type: 
  Country: None (occurrence: None)
  Receive Date: 20070606
  Receipt Date: 20070525
  Transmission Date: 20071010
  Serious: Yes (Other)
  Sender: FDA-Public Use
  Company Number: US-PFIZER INC-2007026900

PATIENT
  Sex: Female
  Weight: 61.7 kg

DRUGS (3)
  1. CHANTIX [Suspect]
     Indication: SMOKING CESSATION THERAPY
     Route: 048
     Dates: start: 20070329, end: 20070329
  2. VITAMIN CAP [Concomitant]
  3. CALCIUM CHLORIDE [Concomitant]

REACTIONS (7)
  - BLOOD PRESSURE INCREASED [None]
  - BLOOD URINE PRESENT [None]
  - FEELING ABNORMAL [None]
  - HEADACHE [None]
  - THROMBOSIS [None]
  - TINNITUS [None]
  - URINARY TRACT INFECTION [None]
